FAERS Safety Report 15255795 (Version 1)
Quarter: 2018Q3

REPORT INFORMATION
  Report Type: Spontaneous
  Country: BR (occurrence: BR)
  Receive Date: 20180808
  Receipt Date: 20180808
  Transmission Date: 20181010
  Serious: Yes (Death, Other)
  Sender: FDA-Public Use
  Company Number: BR-PFIZER INC-2018314821

PATIENT
  Age: 35 Year

DRUGS (2)
  1. BEXTRA [Suspect]
     Active Substance: VALDECOXIB
  2. DEPO?MEDROL [Suspect]
     Active Substance: METHYLPREDNISOLONE ACETATE

REACTIONS (1)
  - Meningitis aseptic [Fatal]
